FAERS Safety Report 9653321 (Version 1)
Quarter: 2013Q4

REPORT INFORMATION
  Report Type: Report from Study
  Country: US (occurrence: US)
  Receive Date: 20131029
  Receipt Date: 20131029
  Transmission Date: 20140711
  Serious: Yes (Other)
  Sender: FDA-Public Use
  Company Number: US-ABBVIE-13P-163-1160355-00

PATIENT
  Age: 62 Year
  Sex: Male
  Weight: 122.58 kg

DRUGS (6)
  1. HUMIRA [Suspect]
     Indication: COLITIS ULCERATIVE
     Dates: start: 2011
  2. APRISO [Concomitant]
     Indication: COLITIS ULCERATIVE
  3. ATACAND [Concomitant]
     Indication: HYPERTENSION
  4. COLESTRIPOL [Concomitant]
     Indication: COLITIS ULCERATIVE
  5. IMMODIUM [Concomitant]
     Indication: COLITIS ULCERATIVE
  6. METFORMIN [Concomitant]
     Indication: GLUCOSE TOLERANCE IMPAIRED

REACTIONS (2)
  - Muscular weakness [Recovering/Resolving]
  - Wrist fracture [Recovering/Resolving]
